FAERS Safety Report 4348925-X (Version None)
Quarter: 2004Q1

REPORT INFORMATION
  Report Type: 
  Country: None (occurrence: None)
  Receive Date: 20040325
  Receipt Date: 20031224
  Transmission Date: 20041129
  Serious: No
  Sender: FDA-Public Use
  Company Number: USA031151671

PATIENT
  Age: 65 Year
  Sex: Female

DRUGS (2)
  1. EVISTA [Suspect]
     Indication: OSTEOPOROSIS
     Dates: start: 20010101, end: 20020101
  2. FORTEO [Suspect]
     Indication: OSTEOPOROSIS
     Dates: start: 20031118

REACTIONS (4)
  - BONE DENSITY DECREASED [None]
  - FRACTURE [None]
  - FREQUENT BOWEL MOVEMENTS [None]
  - LOOSE STOOLS [None]
